FAERS Safety Report 14327473 (Version 2)
Quarter: 2019Q3

REPORT INFORMATION
  Report Type: Report from Study
  Country: US (occurrence: US)
  Receive Date: 20171227
  Receipt Date: 20190802
  Transmission Date: 20191004
  Serious: Yes (Life-Threatening, Hospitalization)
  Sender: FDA-Public Use
  Company Number: US-ROCHE-2045331

PATIENT
  Age: 59 Year
  Sex: Female

DRUGS (15)
  1. DERMAGRAN B [Concomitant]
     Route: 061
  2. OCREVUS [Suspect]
     Active Substance: OCRELIZUMAB
     Indication: MULTIPLE SCLEROSIS
     Dosage: ONGOING; UNKNOWN
     Route: 065
     Dates: start: 20180309
  3. CITALOPRAM [Concomitant]
     Active Substance: CITALOPRAM HYDROBROMIDE
  4. LOPERAMIDE [Concomitant]
     Active Substance: LOPERAMIDE
  5. MELATONIN [Concomitant]
     Active Substance: MELATONIN
  6. CHOLECALCIFEROL [Concomitant]
     Active Substance: CHOLECALCIFEROL
  7. ACETAMINOPHEN;HYDROCODONE [Concomitant]
     Active Substance: ACETAMINOPHEN\HYDROCODONE
  8. DALFAMPRIDINE. [Concomitant]
     Active Substance: DALFAMPRIDINE
  9. OXYBUTYNIN. [Concomitant]
     Active Substance: OXYBUTYNIN CHLORIDE
  10. BACLOFEN. [Concomitant]
     Active Substance: BACLOFEN
  11. CLOBETASOL [Concomitant]
     Active Substance: CLOBETASOL
  12. NITROFURANTOIN. [Concomitant]
     Active Substance: NITROFURANTOIN
  13. OMEPRAZOLE. [Concomitant]
     Active Substance: OMEPRAZOLE
  14. AMANTADINE. [Concomitant]
     Active Substance: AMANTADINE HYDROCHLORIDE
  15. GABAPENTIN. [Concomitant]
     Active Substance: GABAPENTIN

REACTIONS (4)
  - Immunodeficiency [Not Recovered/Not Resolved]
  - Pneumonia [Recovered/Resolved]
  - Influenza [Recovered/Resolved]
  - Uterine cancer [Not Recovered/Not Resolved]

NARRATIVE: CASE EVENT DATE: 20181226
